FAERS Safety Report 14719966 (Version 1)
Quarter: 2018Q2

REPORT INFORMATION
  Report Type: Spontaneous
  Country: CN (occurrence: CN)
  Receive Date: 20180405
  Receipt Date: 20180405
  Transmission Date: 20180711
  Serious: Yes (Death, Other)
  Sender: FDA-Public Use
  Company Number: CN-BAYER-2018-059260

PATIENT
  Age: 49 Year
  Sex: Female

DRUGS (3)
  1. TACE [Concomitant]
     Active Substance: CHLOROTRIANISENE
     Dosage: UNK
     Dates: start: 20141203
  2. NEXAVAR [Suspect]
     Active Substance: SORAFENIB
     Indication: HEPATIC CANCER
     Dosage: 800 MG, UNK
     Route: 048
     Dates: start: 20141109
  3. NEXAVAR [Suspect]
     Active Substance: SORAFENIB
     Indication: HEPATIC CANCER
     Dosage: UNK

REACTIONS (3)
  - Hepatic cancer [Fatal]
  - Ascites [None]
  - Tumour thrombosis [None]

NARRATIVE: CASE EVENT DATE: 20150331
